FAERS Safety Report 5247290-3 (Version None)
Quarter: 2007Q1

REPORT INFORMATION
  Report Type: 
  Country: None (occurrence: None)
  Receive Date: 20070227
  Receipt Date: 20070212
  Transmission Date: 20070707
  Serious: Yes (Other)
  Sender: FDA-Public Use
  Company Number: PHBS2007CH02644

PATIENT
  Age: 37 Year
  Sex: Male

DRUGS (4)
  1. RITALIN [Suspect]
     Dosage: 40 MG/DAY
     Route: 048
     Dates: start: 20061101
  2. RITALIN [Suspect]
     Dosage: 100 MG/DAY
     Dates: start: 20070101
  3. SURMONTIL                               /UNK/ [Concomitant]
  4. EFFEXOR [Concomitant]
     Dates: start: 20070101

REACTIONS (3)
  - DRUG ABUSER [None]
  - INCORRECT DOSE ADMINISTERED [None]
  - INCORRECT ROUTE OF DRUG ADMINISTRATION [None]
